FAERS Safety Report 18267582 (Version 1)
Quarter: 2020Q3

REPORT INFORMATION
  Report Type: Spontaneous
  Country: CN (occurrence: CN)
  Receive Date: 20200915
  Receipt Date: 20200915
  Transmission Date: 20201103
  Serious: Yes (Other)
  Sender: FDA-Public Use
  Company Number: CN-BAXTER-2020BAX018607

PATIENT
  Age: 71 Year
  Sex: Male
  Weight: 50 kg

DRUGS (11)
  1. RITUXIMAB. [Suspect]
     Active Substance: RITUXIMAB
     Dosage: R?CHOP, RITUXIMAB + 0.9% SODIUM CHLORIDE (NS)500ML
     Route: 041
     Dates: start: 20200516, end: 20200516
  2. SODIUM CHLORIDE. [Suspect]
     Active Substance: SODIUM CHLORIDE
     Dosage: R?CHOP, SODIUM CHLORIDE (NS) + VINCRISTINE SULFATE 2 MG
     Route: 042
     Dates: start: 20200517, end: 20200517
  3. POLYETHYLENE GLYCOL RECOMBINANT HUMAN GRANULOCYTE STIMULATING FACTOR [Concomitant]
     Indication: PROPHYLAXIS
     Route: 065
     Dates: start: 202005
  4. ENDOXAN [Suspect]
     Active Substance: CYCLOPHOSPHAMIDE
     Indication: DIFFUSE LARGE B-CELL LYMPHOMA
     Dosage: R?CHOP CHEMOTHERAPY, CYCLOPHOSPHAMIDE + 0.9% SODIUM CHLORIDE (NS) 500ML
     Route: 041
     Dates: start: 20200517, end: 20200517
  5. 5% GLUCOSE  INJECTION [Suspect]
     Active Substance: DEXTROSE
     Indication: MEDICATION DILUTION
     Dosage: R?CHOP, 5% GLUCOSE (GS) + DOXORUBICIN 40 MG
     Route: 041
     Dates: start: 20200517, end: 20200517
  6. SODIUM CHLORIDE. [Suspect]
     Active Substance: SODIUM CHLORIDE
     Indication: MEDICATION DILUTION
     Dosage: R?CHOP, SODIUM CHLORIDE (NS) + CYCLOPHOSPHAMIDE 1.1 GRAM
     Route: 041
     Dates: start: 20200517, end: 20200517
  7. SODIUM CHLORIDE. [Suspect]
     Active Substance: SODIUM CHLORIDE
     Dosage: R?CHOP, SODIUM CHLORIDE (NS) + RITUXIMAB 100MG
     Route: 041
     Dates: start: 20200516, end: 20200516
  8. VINCRISTINE SULFATE. [Suspect]
     Active Substance: VINCRISTINE SULFATE
     Indication: DIFFUSE LARGE B-CELL LYMPHOMA
     Dosage: R?CHOP CHEMOTHERAPY, VINCRISTINE SULFATE + 0.9% SODIUM CHLORIDE (NS) 20ML
     Route: 042
     Dates: start: 20200517, end: 20200517
  9. RITUXIMAB. [Suspect]
     Active Substance: RITUXIMAB
     Indication: DIFFUSE LARGE B-CELL LYMPHOMA
     Dosage: R?CHOP, RITUXIMAB + 0.9% SODIUM CHLORIDE (NS)100ML
     Route: 041
     Dates: start: 20200516, end: 20200516
  10. SODIUM CHLORIDE. [Suspect]
     Active Substance: SODIUM CHLORIDE
     Dosage: R?CHOP, SODIUM CHLORIDE (NS) + RITUXIMAB 500 MG
     Route: 041
     Dates: start: 20200516, end: 20200516
  11. DOXORUBICIN [Suspect]
     Active Substance: DOXORUBICIN
     Indication: DIFFUSE LARGE B-CELL LYMPHOMA
     Dosage: R?CHOP, DOXORUBICIN + 5% GLUCOSE (GS) 250ML
     Route: 041
     Dates: start: 20200517, end: 20200517

REACTIONS (4)
  - Agranulocytosis [Unknown]
  - Pyrexia [Unknown]
  - Leukopenia [Unknown]
  - Neutropenia [Unknown]

NARRATIVE: CASE EVENT DATE: 20200522
